FAERS Safety Report 5670017-8 (Version None)
Quarter: 2008Q1

REPORT INFORMATION
  Report Type: 
  Country: None (occurrence: None)
  Receive Date: 20080312
  Receipt Date: 20080304
  Transmission Date: 20080703
  Serious: Yes (Death, Hospitalization)
  Sender: FDA-Public Use
  Company Number: 2008SP000770

PATIENT
  Age: 63 Year
  Sex: Female
  Weight: 56 kg

DRUGS (10)
  1. NOXAFIL [Suspect]
     Indication: GRAFT VERSUS HOST DISEASE
     Dosage: 200 MG; Q8H; PO
     Route: 048
     Dates: start: 20071031, end: 20071225
  2. NOXAFIL [Suspect]
     Indication: TRANSPLANT
     Dosage: 200 MG; Q8H; PO
     Route: 048
     Dates: start: 20071031, end: 20071225
  3. CORTICOSTEROID [Concomitant]
  4. CELLCEPT [Concomitant]
  5. PREDNISONE TAB [Concomitant]
  6. MAGNESIOBOI [Concomitant]
  7. SEPTRIN FORTE [Concomitant]
  8. ADALAT [Concomitant]
  9. APOCARD [Concomitant]
  10. OMEPRAZOLE [Concomitant]

REACTIONS (6)
  - BLINDNESS [None]
  - CENTRAL PONTINE MYELINOLYSIS [None]
  - DRUG INEFFECTIVE [None]
  - DRUG TOXICITY [None]
  - GENERAL PHYSICAL HEALTH DETERIORATION [None]
  - QUADRIPARESIS [None]
